FAERS Safety Report 13852635 (Version 1)
Quarter: 2017Q3

REPORT INFORMATION
  Report Type: Spontaneous
  Country: US (occurrence: US)
  Receive Date: 20170809
  Receipt Date: 20170809
  Transmission Date: 20171127
  Serious: Yes (Death)
  Sender: FDA-Public Use
  Company Number: None

PATIENT
  Age: 46 Year
  Sex: Male

DRUGS (8)
  1. ADCIRCA [Suspect]
     Active Substance: TADALAFIL
     Indication: PORTAL HYPERTENSION
     Route: 048
     Dates: start: 20161025, end: 201707
  2. KCL [Concomitant]
     Active Substance: POTASSIUM CHLORIDE
  3. LETAIRIS [Concomitant]
     Active Substance: AMBRISENTAN
  4. GABAPENTIN. [Concomitant]
     Active Substance: GABAPENTIN
  5. XIFAXAN [Concomitant]
     Active Substance: RIFAXIMIN
  6. RENA-VITE [Concomitant]
     Active Substance: ASCORBIC ACID\BIOTIN\CALCIUM PANTOTHENATE\CYANOCOBALAMIN\FOLIC ACID\NIACINAMIDE\PYRIDOXINE HYDROCHLORIDE\RIBOFLAVIN\THIAMINE MONONITRATE
  7. LACTULOSE. [Concomitant]
     Active Substance: LACTULOSE
  8. OMEPRAZOLE. [Concomitant]
     Active Substance: OMEPRAZOLE

REACTIONS (1)
  - Death [None]

NARRATIVE: CASE EVENT DATE: 201707
